FAERS Safety Report 8533693-8 (Version None)
Quarter: 2012Q3

REPORT INFORMATION
  Report Type: 
  Country: None (occurrence: None)
  Receive Date: 20120724
  Receipt Date: 20120716
  Transmission Date: 20120928
  Serious: Yes (Other)
  Sender: FDA-Public Use
  Company Number: BE-B.I. PHARMACEUTICALS,INC./RIDGEFIELD-2012-BL-00425BL

PATIENT
  Sex: Female
  Weight: 70.3 kg

DRUGS (9)
  1. LERCANIDIPINE [Concomitant]
     Dosage: 5 MG
  2. ZOLPIDEM TATRATE [Concomitant]
  3. LASIX [Concomitant]
     Dosage: 80 MG
     Dates: end: 20120615
  4. LOSARTAN POTASSIUM [Suspect]
     Indication: ANGIOPLASTY
     Dates: end: 20120615
  5. PRADAXA [Suspect]
     Dosage: 110 MG
     Route: 048
     Dates: start: 20120615
  6. BISOPROLOL FUMARATE [Concomitant]
     Dosage: 5 MG
  7. PRADAXA [Suspect]
     Indication: ATRIAL FIBRILLATION
     Dosage: 220 MG
     Dates: end: 20120615
  8. CORDARONE [Concomitant]
     Dosage: 142.8571 NR
  9. LORAZEPAM [Concomitant]

REACTIONS (1)
  - RENAL FAILURE ACUTE [None]
